FAERS Safety Report 5727380-9 (Version None)
Quarter: 2008Q2

REPORT INFORMATION
  Report Type: 
  Country: None (occurrence: None)
  Receive Date: 20080505
  Receipt Date: 20080424
  Transmission Date: 20081010
  Serious: Yes (Hospitalization)
  Sender: FDA-Public Use
  Company Number: US-JNJFOC-20080203093

PATIENT
  Sex: Female
  Weight: 70.31 kg

DRUGS (5)
  1. REMICADE [Suspect]
     Indication: PSORIATIC ARTHROPATHY
     Dosage: 2 INFUSIONS
     Route: 042
  2. PREDNISONE [Concomitant]
     Indication: PSORIATIC ARTHROPATHY
  3. SYNTHROID [Concomitant]
     Indication: HYPOTHYROIDISM
  4. METPHORMINE [Concomitant]
     Indication: DIABETES MELLITUS
  5. GLIPISIDE [Concomitant]
     Indication: DIABETES MELLITUS

REACTIONS (7)
  - CHILLS [None]
  - HYPERHIDROSIS [None]
  - HYPERSENSITIVITY [None]
  - INFUSION RELATED REACTION [None]
  - PAIN [None]
  - SERUM SICKNESS [None]
  - VOMITING [None]
